FAERS Safety Report 10078869 (Version 1)
Quarter: 2014Q2

REPORT INFORMATION
  Report Type: Spontaneous
  Country: US (occurrence: US)
  Receive Date: 20140415
  Receipt Date: 20140415
  Transmission Date: 20141212
  Serious: Yes (Hospitalization, Other)
  Sender: FDA-Public Use
  Company Number: US-AMGEN INC.-USASP2014025931

PATIENT
  Age: 56 Year
  Sex: Female

DRUGS (4)
  1. ENBREL [Suspect]
     Indication: RHEUMATOID ARTHRITIS
     Dosage: 25 MG, 2 TIMES/WK
     Route: 065
     Dates: start: 19990101
  2. METHOTREXATE [Concomitant]
     Dosage: UNK
  3. SULFASALAZINE [Concomitant]
     Dosage: UNK
  4. ARAVA [Concomitant]
     Dosage: UNK

REACTIONS (7)
  - Hip arthroplasty [Recovered/Resolved]
  - Shoulder arthroplasty [Recovered/Resolved]
  - Rotator cuff syndrome [Unknown]
  - Osteoarthritis [Not Recovered/Not Resolved]
  - Nodule [Not Recovered/Not Resolved]
  - Erythema [Recovered/Resolved]
  - Pruritus [Not Recovered/Not Resolved]
